FAERS Safety Report 18651966 (Version 1)
Quarter: 2020Q4

REPORT INFORMATION
  Report Type: Spontaneous
  Country: MY (occurrence: MY)
  Receive Date: 20201222
  Receipt Date: 20201222
  Transmission Date: 20210114
  Serious: Yes (Other)
  Sender: FDA-Public Use
  Company Number: MY-MYLANLABS-2020M1104549

PATIENT
  Age: 34 Year
  Sex: Male

DRUGS (1)
  1. FONDAPARINUX [Suspect]
     Active Substance: FONDAPARINUX
     Indication: MYOCARDIAL INFARCTION
     Dosage: 2.5 MILLIGRAM, QD
     Route: 058

REACTIONS (1)
  - Face oedema [Recovered/Resolved]
